FAERS Safety Report 4469376-3 (Version None)
Quarter: 2005Q1

REPORT INFORMATION
  Report Type: 
  Country: None (occurrence: None)
  Receive Date: 20041008
  Receipt Date: 20040406
  Transmission Date: 20050727
  Serious: No
  Sender: FDA-Public Use
  Company Number: US-BRISTOL-MYERS SQUIBB COMPANY-12552030

PATIENT
  Sex: Female
  Weight: 66 kg

DRUGS (3)
  1. AVAPRO [Suspect]
     Indication: HYPERTENSION
     Route: 048
     Dates: start: 20040101
  2. FOSAMAX [Concomitant]
  3. SYNTHROID [Concomitant]

REACTIONS (1)
  - DYSGEUSIA [None]
